FAERS Safety Report 12240009 (Version 1)
Quarter: 2016Q2

REPORT INFORMATION
  Report Type: Spontaneous
  Country: US (occurrence: US)
  Receive Date: 20160405
  Receipt Date: 20160405
  Transmission Date: 20160815
  Serious: No
  Sender: FDA-Public Use
  Company Number: US-ROCHE-1645794

PATIENT
  Sex: Female

DRUGS (7)
  1. KADCYLA [Suspect]
     Active Substance: ADO-TRASTUZUMAB EMTANSINE
     Indication: BREAST CANCER
     Dosage: PATIENT TAKES ONCE EVERY TWENTY ONE DAYS
     Route: 042
     Dates: start: 20151005
  2. KADCYLA [Suspect]
     Active Substance: ADO-TRASTUZUMAB EMTANSINE
     Indication: HER-2 POSITIVE BREAST CANCER
  3. HERCEPTIN [Suspect]
     Active Substance: TRASTUZUMAB
     Indication: BREAST CANCER
     Route: 065
  4. TAXOTERE [Suspect]
     Active Substance: DOCETAXEL
     Indication: BREAST CANCER
     Route: 065
  5. PREVACID [Concomitant]
     Active Substance: LANSOPRAZOLE
  6. GAZYVA [Suspect]
     Active Substance: OBINUTUZUMAB
     Indication: BREAST CANCER METASTATIC
     Route: 065
  7. PERJETA [Suspect]
     Active Substance: PERTUZUMAB
     Indication: BREAST CANCER
     Route: 065

REACTIONS (12)
  - Anxiety [Unknown]
  - Balance disorder [Unknown]
  - Middle insomnia [Not Recovered/Not Resolved]
  - Neuropathy peripheral [Not Recovered/Not Resolved]
  - Disturbance in attention [Unknown]
  - Fatigue [Unknown]
  - Decreased appetite [Recovering/Resolving]
  - Nausea [Unknown]
  - Bone pain [Unknown]
  - Myalgia [Unknown]
  - Weight decreased [Unknown]
  - Muscle twitching [Not Recovered/Not Resolved]
